FAERS Safety Report 11473677 (Version 5)
Quarter: 2016Q3

REPORT INFORMATION
  Report Type: Report from Study
  Country: CA (occurrence: CA)
  Receive Date: 20150908
  Receipt Date: 20160926
  Transmission Date: 20161109
  Serious: Yes (Hospitalization, Other)
  Sender: FDA-Public Use
  Company Number: CA-ABBVIE-15K-028-1450969-00

PATIENT
  Age: 7 Year
  Sex: Female
  Weight: 22.1 kg

DRUGS (9)
  1. AZATHIOPRINE. [Concomitant]
     Active Substance: AZATHIOPRINE
     Indication: CROHN^S DISEASE
     Route: 048
     Dates: start: 20150427, end: 20150812
  2. FERROUS SULFATE. [Concomitant]
     Active Substance: FERROUS SULFATE
     Indication: CROHN^S DISEASE
     Route: 048
     Dates: start: 20150122
  3. SPIRONOLACTONE. [Concomitant]
     Active Substance: SPIRONOLACTONE
     Indication: PRODUCT USED FOR UNKNOWN INDICATION
     Route: 048
     Dates: start: 201509
  4. URSODIOL. [Concomitant]
     Active Substance: URSODIOL
     Indication: CHOLANGITIS SCLEROSING
     Route: 048
     Dates: start: 20141112, end: 20150812
  5. VITAMIN D [Concomitant]
     Active Substance: CHOLECALCIFEROL
     Indication: CHOLANGITIS SCLEROSING
     Route: 048
     Dates: start: 20150122
  6. MULTIVITAMIN [Concomitant]
     Active Substance: VITAMINS
     Indication: CROHN^S DISEASE
     Route: 048
     Dates: start: 20150122
  7. VITAMIN K [Concomitant]
     Active Substance: PHYTONADIONE
     Indication: CHOLANGITIS SCLEROSING
     Route: 048
     Dates: start: 20150212
  8. VITAMIN D [Concomitant]
     Active Substance: CHOLECALCIFEROL
     Indication: CROHN^S DISEASE
  9. HUMIRA [Suspect]
     Active Substance: ADALIMUMAB
     Indication: CROHN^S DISEASE
     Route: 058
     Dates: start: 20150528, end: 20150805

REACTIONS (27)
  - Ascites [Not Recovered/Not Resolved]
  - Pancytopenia [Recovering/Resolving]
  - Blood alkaline phosphatase increased [Recovered/Resolved]
  - Pruritus [Unknown]
  - Malaise [Recovering/Resolving]
  - Inflammatory bowel disease [Not Recovered/Not Resolved]
  - Pyrexia [Recovered/Resolved]
  - Abdominal pain [Unknown]
  - Cough [Unknown]
  - Hepatosplenomegaly [Unknown]
  - Bone marrow failure [Unknown]
  - Malnutrition [Unknown]
  - Anaemia [Unknown]
  - Lower respiratory tract infection viral [Unknown]
  - Reticulocyte count increased [Unknown]
  - Flank pain [Unknown]
  - Failure to thrive [Unknown]
  - Hepatic function abnormal [Unknown]
  - Jaundice [Unknown]
  - Portal hypertensive gastropathy [Recovered/Resolved]
  - Hypotension [Recovered/Resolved]
  - Arthralgia [Unknown]
  - Hyperammonaemia [Recovering/Resolving]
  - Urine output decreased [Unknown]
  - Back pain [Unknown]
  - Body height below normal [Unknown]
  - Varices oesophageal [Recovered/Resolved]

NARRATIVE: CASE EVENT DATE: 2015
